FAERS Safety Report 6597666-7 (Version None)
Quarter: 2010Q1

REPORT INFORMATION
  Report Type: 
  Country: None (occurrence: None)
  Receive Date: 20100223
  Receipt Date: 20100215
  Transmission Date: 20100710
  Serious: Yes (Hospitalization)
  Sender: FDA-Public Use
  Company Number: US-ABBOTT-10P-163-0626271-00

PATIENT
  Sex: Female
  Weight: 118.04 kg

DRUGS (7)
  1. DEPAKOTE [Suspect]
     Indication: BIPOLAR DISORDER
     Dosage: 1000 MG IN AM/ 1500 AT HS
     Dates: start: 20091224
  2. DEPAKOTE [Suspect]
  3. ALPRAZOLAM [Concomitant]
     Indication: DRUG USE FOR UNKNOWN INDICATION
  4. LEVOTHYROXINE SODIUM [Concomitant]
     Indication: HYPOTHYROIDISM
     Dates: start: 20091224
  5. LEVOTHYROXINE SODIUM [Concomitant]
     Dates: end: 20091224
  6. SIMVASTATIN [Concomitant]
     Indication: BLOOD CHOLESTEROL
  7. LISINOPRIL [Concomitant]
     Indication: BLOOD PRESSURE

REACTIONS (4)
  - DEPRESSION [None]
  - DROOLING [None]
  - FEELING ABNORMAL [None]
  - MANIA [None]
